FAERS Safety Report 16839904 (Version 1)
Quarter: 2019Q4

REPORT INFORMATION
  Report Type: Spontaneous
  Country: US (occurrence: US)
  Receive Date: 20190922
  Receipt Date: 20190922
  Transmission Date: 20200122
  Serious: Yes (Disabling)
  Sender: FDA-Public Use
  Company Number: None

PATIENT
  Age: 43 Year
  Sex: Male
  Weight: 85.5 kg

DRUGS (14)
  1. STEGLATRO [Concomitant]
     Active Substance: ERTUGLIFLOZIN PIDOLATE
  2. TRULICITY [Concomitant]
     Active Substance: DULAGLUTIDE
  3. TOPIRAMATE. [Concomitant]
     Active Substance: TOPIRAMATE
  4. ZOLPIDEM [Suspect]
     Active Substance: ZOLPIDEM TARTRATE
     Indication: INSOMNIA
     Dosage: ?          QUANTITY:1 TABLET(S);?
     Route: 048
  5. LOSARTAN. [Concomitant]
     Active Substance: LOSARTAN
  6. TESTOSTERONE. [Concomitant]
     Active Substance: TESTOSTERONE
  7. ZOLPIDEM [Concomitant]
     Active Substance: ZOLPIDEM TARTRATE
  8. BASAGLAR [Concomitant]
     Active Substance: INSULIN GLARGINE
  9. HYDROCHLOROTHIAZIDE. [Concomitant]
     Active Substance: HYDROCHLOROTHIAZIDE
  10. VITAMIN D [Concomitant]
     Active Substance: VITAMIN D NOS
  11. ATENOLOL. [Concomitant]
     Active Substance: ATENOLOL
  12. METFORMIN [Concomitant]
     Active Substance: METFORMIN HYDROCHLORIDE
  13. ZANTAC [Concomitant]
     Active Substance: RANITIDINE HYDROCHLORIDE
  14. CLONODINE [Concomitant]
     Active Substance: CLONIDINE

REACTIONS (3)
  - Product substitution issue [None]
  - Fear [None]
  - Drug ineffective [None]

NARRATIVE: CASE EVENT DATE: 20170901
